FAERS Safety Report 26120002 (Version 1)
Quarter: 2025Q4

REPORT INFORMATION
  Report Type: Spontaneous
  Country: US (occurrence: US)
  Receive Date: 20251204
  Receipt Date: 20251204
  Transmission Date: 20260118
  Serious: Yes (Other)
  Sender: RANBAXY
  Company Number: US-SUN PHARMACEUTICAL INDUSTRIES INC-2025R1-539347

PATIENT
  Age: 44 Year
  Sex: Male

DRUGS (5)
  1. ARIPIPRAZOLE [Suspect]
     Active Substance: ARIPIPRAZOLE
     Indication: Seizure
     Dosage: 15 MILLIGRAM, DAILY
     Route: 065
     Dates: start: 202402
  2. ARIPIPRAZOLE [Suspect]
     Active Substance: ARIPIPRAZOLE
     Dosage: 20 MILLIGRAM, DAILY
     Route: 065
     Dates: start: 202404
  3. ARIPIPRAZOLE [Suspect]
     Active Substance: ARIPIPRAZOLE
     Dosage: 30 MILLIGRAM, DAILY
     Route: 065
     Dates: start: 202410
  4. OLANZAPINE [Suspect]
     Active Substance: OLANZAPINE
     Indication: Seizure
     Dosage: 5 MILLIGRAM, DAILY
     Route: 065
     Dates: start: 202503
  5. OLANZAPINE [Suspect]
     Active Substance: OLANZAPINE
     Dosage: 10 MILLIGRAM, DAILY
     Route: 065
     Dates: start: 202504

REACTIONS (1)
  - Therapy partial responder [Unknown]
